FAERS Safety Report 9124741 (Version 4)
Quarter: 2014Q4

REPORT INFORMATION
  Report Type: Spontaneous
  Country: US (occurrence: US)
  Receive Date: 20130116
  Receipt Date: 20141210
  Transmission Date: 20150529
  Serious: Yes (Disabling, Other)
  Sender: FDA-Public Use
  Company Number: US-BAYER-2013-004932

PATIENT
  Sex: Female

DRUGS (1)
  1. CIPRO [Suspect]
     Active Substance: CIPROFLOXACIN HYDROCHLORIDE
     Dosage: UNK
     Dates: start: 201212

REACTIONS (7)
  - Injury [None]
  - Toxicity to various agents [None]
  - Pain [None]
  - Adverse event [None]
  - Emotional disorder [None]
  - Abasia [None]
  - Neuropathy peripheral [None]

NARRATIVE: CASE EVENT DATE: 201212
